FAERS Safety Report 20512328 (Version 1)
Quarter: 2022Q1

REPORT INFORMATION
  Report Type: Spontaneous
  Country: US (occurrence: None)
  Receive Date: 20220224
  Receipt Date: 20220224
  Transmission Date: 20220423
  Serious: Yes (Hospitalization)
  Sender: FDA-Public Use
  Company Number: None

PATIENT
  Sex: Male

DRUGS (8)
  1. MINERALS\VITAMINS [Suspect]
     Active Substance: MINERALS\VITAMINS
     Indication: Pancreatic failure
     Dosage: FREQUENCY : DAILY;?
     Route: 048
     Dates: start: 20210731
  2. DIETARY SUPPLEMENT [Concomitant]
     Active Substance: DIETARY SUPPLEMENT
  3. FERROUS SULFATE [Concomitant]
     Active Substance: FERROUS SULFATE
  4. VITAMIN A [Concomitant]
     Active Substance: VITAMIN A
  5. VITAMIN D [Concomitant]
     Active Substance: VITAMIN D NOS
  6. VITAMIN D3 [Concomitant]
     Active Substance: CHOLECALCIFEROL
  7. VITAMIN E [Concomitant]
     Active Substance: .ALPHA.-TOCOPHEROL
  8. VITAMIN EID-ALPHA [Concomitant]

REACTIONS (1)
  - COVID-19 [None]
